FAERS Safety Report 10086608 (Version 1)
Quarter: 2014Q2

REPORT INFORMATION
  Report Type: Spontaneous
  Country: US (occurrence: US)
  Receive Date: 20140418
  Receipt Date: 20140418
  Transmission Date: 20141212
  Serious: No
  Sender: FDA-Public Use
  Company Number: US-B.I. PHARMACEUTICALS,INC./RIDGEFIELD-2014-BI-15846BP

PATIENT
  Age: 72 Year
  Sex: Male

DRUGS (13)
  1. SPIRIVA [Suspect]
     Indication: CHRONIC OBSTRUCTIVE PULMONARY DISEASE
     Dosage: 18 MCG
     Route: 055
  2. ASPIRIN [Concomitant]
     Route: 048
  3. BENAZEPRIL [Concomitant]
     Route: 048
  4. NIACIN [Concomitant]
     Route: 048
  5. ZETIA [Concomitant]
     Route: 048
  6. ATORVASTATIN [Concomitant]
     Route: 048
  7. CARVEDILOL [Concomitant]
     Route: 048
  8. ULORIC [Concomitant]
     Route: 048
  9. ELIQUIST [Concomitant]
     Route: 048
  10. FLOVENT [Concomitant]
     Route: 055
  11. GABAPENTIN [Concomitant]
     Route: 048
  12. TRAZODONE [Concomitant]
     Route: 048
  13. TAMSULOSIN [Concomitant]
     Route: 048

REACTIONS (7)
  - Asthenia [Recovered/Resolved]
  - Lethargy [Recovered/Resolved]
  - Muscular weakness [Recovered/Resolved]
  - Fatigue [Recovered/Resolved]
  - Product quality issue [Recovered/Resolved]
  - Product quality issue [Recovered/Resolved]
  - Product quality issue [Recovered/Resolved]
